FAERS Safety Report 19770295 (Version 5)
Quarter: 2021Q4

REPORT INFORMATION
  Report Type: Report from Study
  Country: US (occurrence: US)
  Receive Date: 20210831
  Receipt Date: 20211013
  Transmission Date: 20220303
  Serious: Yes (Hospitalization)
  Sender: FDA-Public Use
  Company Number: US-TAKEDA-2021TUS052789

PATIENT
  Age: 53 Year
  Sex: Female
  Weight: 49.9 kg

DRUGS (4)
  1. IXAZOMIB [Suspect]
     Active Substance: IXAZOMIB
     Indication: Plasma cell myeloma refractory
     Dosage: 2.3 MILLIGRAM
     Route: 048
     Dates: start: 20210804, end: 20210821
  2. DARATUMUMAB [Suspect]
     Active Substance: DARATUMUMAB
     Indication: Plasma cell myeloma refractory
     Dosage: 1800 MILLIGRAM, MONTHLY
     Route: 058
     Dates: start: 20210804
  3. POMALIDOMIDE [Suspect]
     Active Substance: POMALIDOMIDE
     Indication: Plasma cell myeloma refractory
     Dosage: 2 MILLIGRAM
     Route: 048
     Dates: start: 20210804, end: 20210821
  4. DEXAMETHASONE [Suspect]
     Active Substance: DEXAMETHASONE
     Indication: Plasma cell myeloma refractory
     Dosage: 8 MILLIGRAM, 1/WEEK
     Route: 048
     Dates: start: 20210804, end: 20210821

REACTIONS (2)
  - Pneumonia cryptococcal [Recovering/Resolving]
  - Neurocryptococcosis [Recovering/Resolving]

NARRATIVE: CASE EVENT DATE: 20210821
